FAERS Safety Report 9370992 (Version 1)
Quarter: 2013Q2

REPORT INFORMATION
  Report Type: Report from Study
  Country: US (occurrence: US)
  Receive Date: 20130627
  Receipt Date: 20130627
  Transmission Date: 20140414
  Serious: Yes (Other)
  Sender: FDA-Public Use
  Company Number: US-ROCHE-1241185

PATIENT
  Age: 66 Year
  Sex: 0

DRUGS (10)
  1. RITUXIMAB [Suspect]
     Indication: MANTLE CELL LYMPHOMA
     Route: 065
  2. CYCLOPHOSPHAMIDE [Suspect]
     Indication: MANTLE CELL LYMPHOMA
     Route: 065
  3. VINCRISTINE [Suspect]
     Indication: MANTLE CELL LYMPHOMA
     Route: 065
  4. DOXORUBICINE [Suspect]
     Indication: MANTLE CELL LYMPHOMA
     Route: 065
  5. DEXAMETHASONE [Suspect]
     Indication: MANTLE CELL LYMPHOMA
     Route: 065
  6. METHOTREXATE [Suspect]
     Indication: MANTLE CELL LYMPHOMA
     Route: 065
  7. CYTARABINE [Suspect]
     Indication: MANTLE CELL LYMPHOMA
     Route: 065
  8. IFOSFAMIDE [Suspect]
     Indication: MANTLE CELL LYMPHOMA
     Route: 065
  9. CARBOPLATIN [Suspect]
     Indication: MANTLE CELL LYMPHOMA
     Route: 065
  10. ETOPOSIDE [Suspect]
     Indication: MANTLE CELL LYMPHOMA
     Route: 065

REACTIONS (1)
  - Myelodysplastic syndrome [Unknown]
